FAERS Safety Report 6379072-3 (Version None)
Quarter: 2009Q3

REPORT INFORMATION
  Report Type: 
  Country: None (occurrence: None)
  Receive Date: 20090923
  Receipt Date: 20090923
  Transmission Date: 20100115
  Serious: No
  Sender: FDA-Public Use
  Company Number: None

PATIENT
  Age: 75 Year
  Sex: Male
  Weight: 73 kg

DRUGS (10)
  1. CLONAZEPAM [Suspect]
     Indication: AGITATION
     Dosage: 2.5MG PO X 1
     Route: 048
     Dates: start: 20090626
  2. AMLODIPINE [Concomitant]
  3. HYTRIN [Concomitant]
  4. PRINIVIL [Concomitant]
  5. INSULIN [Concomitant]
  6. ZEMPLAR [Concomitant]
  7. LABETALOL HCL [Concomitant]
  8. KEPPRA [Concomitant]
  9. CELEXA [Concomitant]
  10. PHOSLO [Concomitant]

REACTIONS (7)
  - FALL [None]
  - HEART RATE INCREASED [None]
  - PNEUMONIA ASPIRATION [None]
  - PYREXIA [None]
  - RESPIRATORY RATE INCREASED [None]
  - SEPSIS [None]
  - SOMNOLENCE [None]
